FAERS Safety Report 7994353-5 (Version None)
Quarter: 2011Q4

REPORT INFORMATION
  Report Type: 
  Country: None (occurrence: None)
  Receive Date: 20111220
  Receipt Date: 20110623
  Transmission Date: 20120403
  Serious: No
  Sender: FDA-Public Use
  Company Number: US-GLAXOSMITHKLINE-A0934099A

PATIENT
  Age: 54 Year
  Sex: Female

DRUGS (3)
  1. VITAMIN [Concomitant]
  2. PHENTERMINE [Concomitant]
     Dosage: 37.5MG SEE DOSAGE TEXT
     Route: 048
  3. SORIATANE [Suspect]
     Indication: PSORIASIS
     Dosage: 50MG PER DAY
     Route: 048
     Dates: start: 20110101, end: 20110622

REACTIONS (5)
  - ALOPECIA [None]
  - PRURITUS [None]
  - CHAPPED LIPS [None]
  - PALMAR ERYTHEMA [None]
  - SKIN EXFOLIATION [None]
